FAERS Safety Report 20501227 (Version 1)
Quarter: 2022Q1

REPORT INFORMATION
  Report Type: Spontaneous
  Country: US (occurrence: None)
  Receive Date: 20220222
  Receipt Date: 20220222
  Transmission Date: 20220423
  Serious: Yes (Hospitalization, Other)
  Sender: FDA-Public Use
  Company Number: US-MLMSERVICE-20220201-3349589-1

PATIENT
  Age: 73 Year
  Sex: Female

DRUGS (1)
  1. ANASTROZOLE [Suspect]
     Active Substance: ANASTROZOLE
     Indication: Hormone receptor positive breast cancer
     Dosage: UNKNOWN
     Route: 065
     Dates: start: 2014, end: 2018

REACTIONS (7)
  - Iridocyclitis [Unknown]
  - Vitreoretinal traction syndrome [Recovered/Resolved]
  - Vitreous detachment [Unknown]
  - Cystoid macular oedema [Recovered/Resolved]
  - Epiretinal membrane [Unknown]
  - Retinal vasculitis [Unknown]
  - Lupus-like syndrome [Unknown]

NARRATIVE: CASE EVENT DATE: 20180401
